FAERS Safety Report 20868804 (Version 1)
Quarter: 2022Q2

REPORT INFORMATION
  Report Type: Spontaneous
  Country: US (occurrence: None)
  Receive Date: 20220524
  Receipt Date: 20220524
  Transmission Date: 20220721
  Serious: No
  Sender: FDA-Public Use
  Company Number: None

PATIENT
  Age: 37 Year
  Sex: Female
  Weight: 74.25 kg

DRUGS (12)
  1. SERTRALINE HYDROCHLORIDE [Suspect]
     Active Substance: SERTRALINE HYDROCHLORIDE
     Indication: Anxiety
     Dosage: OTHER QUANTITY : 1 TABLET(S);?
     Route: 048
  2. TRANEXAMIC ACID [Concomitant]
  3. triamcinolone ointment [Concomitant]
  4. Calcium d-glucarate [Concomitant]
  5. L-glutamine [Concomitant]
  6. IRON [Concomitant]
     Active Substance: IRON
  7. PRIMROSE OIL [Concomitant]
  8. COD LIVER OIL [Concomitant]
     Active Substance: COD LIVER OIL
  9. CALCIUM CITRATE [Concomitant]
     Active Substance: CALCIUM CITRATE
  10. MAGNESIUM CHLORIDE [Concomitant]
     Active Substance: MAGNESIUM CHLORIDE
  11. PROBIOTICS NOS [Concomitant]
     Active Substance: PROBIOTICS NOS
  12. beef immunoglobulin [Concomitant]

REACTIONS (7)
  - Vision blurred [None]
  - Vitreous floaters [None]
  - Night sweats [None]
  - Skin odour abnormal [None]
  - Dizziness [None]
  - Tinnitus [None]
  - Libido decreased [None]
